FAERS Safety Report 4709147-3 (Version None)
Quarter: 2005Q3

REPORT INFORMATION
  Report Type: 
  Country: None (occurrence: None)
  Receive Date: 20050706
  Receipt Date: 20050624
  Transmission Date: 20060218
  Serious: Yes (Other)
  Sender: FDA-Public Use
  Company Number: 2005083258

PATIENT
  Age: 77 Year
  Sex: Male
  Weight: 68.0396 kg

DRUGS (14)
  1. ALDACTONE [Suspect]
     Indication: HYPERALDOSTERONISM
     Dosage: 25 MG (25 MG, QD), ORAL
     Route: 048
     Dates: start: 20050301, end: 20050501
  2. MEDROL [Suspect]
     Indication: POLYMYALGIA
     Dosage: 4 MG (25 MG, QD), ORAL
     Route: 048
  3. HYTRIN [Concomitant]
  4. PLENDIL [Concomitant]
  5. ATENOLOL [Concomitant]
  6. MICARDIS [Concomitant]
  7. CLONIDINE [Concomitant]
  8. DARVOCET-N (DEXTROPROXYPHENE NAPSILATE, PARACETAMOL) [Concomitant]
  9. FLOMAX ^CSL^ (TAMSULOSIN HYDROCHLORIDE) [Concomitant]
  10. DOEXPIN (DOXEPIN) [Concomitant]
  11. NOVOLOG (INSULIN ASPARAT) [Concomitant]
  12. FLOVENT [Concomitant]
  13. ATROVENT [Concomitant]
  14. ASPIRIN [Concomitant]

REACTIONS (5)
  - BLOOD PRESSURE INADEQUATELY CONTROLLED [None]
  - BLOOD PRESSURE SYSTOLIC INCREASED [None]
  - HYPERALDOSTERONISM [None]
  - HYPONATRAEMIA [None]
  - MALAISE [None]
